FAERS Safety Report 16664920 (Version 1)
Quarter: 2019Q3

REPORT INFORMATION
  Report Type: Spontaneous
  Country: US (occurrence: US)
  Receive Date: 20190803
  Receipt Date: 20190803
  Transmission Date: 20191004
  Serious: No
  Sender: FDA-Public Use
  Company Number: US-UNITED THERAPEUTICS-UNT-2019-012730

PATIENT
  Age: 80 Year
  Sex: Female
  Weight: 88.44 kg

DRUGS (2)
  1. OPSUMIT [Concomitant]
     Active Substance: MACITENTAN
     Indication: PRODUCT USED FOR UNKNOWN INDICATION
     Dosage: UNK
     Route: 065
  2. TYVASO [Suspect]
     Active Substance: TREPROSTINIL
     Indication: PULMONARY ARTERIAL HYPERTENSION
     Dosage: 12-54 ?G, QID
     Dates: start: 20160915

REACTIONS (2)
  - Nerve compression [Unknown]
  - Off label use [Unknown]

NARRATIVE: CASE EVENT DATE: 20160915
